FAERS Safety Report 24121543 (Version 2)
Quarter: 2024Q3

REPORT INFORMATION
  Report Type: Report from Study
  Country: US (occurrence: US)
  Receive Date: 20240722
  Receipt Date: 20240819
  Transmission Date: 20241017
  Serious: No
  Sender: ALEXION PHARMACEUTICALS
  Company Number: US-ALEXION-115597

PATIENT
  Sex: Female

DRUGS (1)
  1. SOLIRIS [Suspect]
     Active Substance: ECULIZUMAB
     Indication: Atypical haemolytic uraemic syndrome
     Dosage: UNK
     Route: 042

REACTIONS (6)
  - Blood creatinine abnormal [Unknown]
  - Blood pressure abnormal [Recovering/Resolving]
  - Stress [Unknown]
  - White blood cell count increased [Unknown]
  - Asthenia [Unknown]
  - Sinusitis [Unknown]

NARRATIVE: CASE EVENT DATE: 20200101
